FAERS Safety Report 23884628 (Version 1)
Quarter: 2024Q2

REPORT INFORMATION
  Report Type: Spontaneous
  Country: US (occurrence: None)
  Receive Date: 20240522
  Receipt Date: 20240522
  Transmission Date: 20240715
  Serious: No
  Sender: FDA-Public Use
  Company Number: None

PATIENT

DRUGS (1)
  1. ENTECAVIR [Suspect]
     Active Substance: ENTECAVIR

REACTIONS (8)
  - Disease recurrence [None]
  - Non-Hodgkin^s lymphoma [None]
  - Therapy cessation [None]
  - Malaise [None]
  - International normalised ratio increased [None]
  - Renal failure [None]
  - Hepatitis B DNA increased [None]
  - Hepatitis B [None]

NARRATIVE: CASE EVENT DATE: 20190728
